FAERS Safety Report 15036769 (Version 1)
Quarter: 2018Q2

REPORT INFORMATION
  Report Type: Spontaneous
  Country: DE (occurrence: DE)
  Receive Date: 20180620
  Receipt Date: 20180620
  Transmission Date: 20180711
  Serious: Yes (Hospitalization)
  Sender: FDA-Public Use
  Company Number: DE-TEVA-2018-DE-911760

PATIENT
  Age: 73 Year
  Sex: Male
  Weight: 60 kg

DRUGS (15)
  1. SPIRONOLACTONE. [Suspect]
     Active Substance: SPIRONOLACTONE
     Dosage: 50 MG, 1-0-0-0, TABLETTEN
     Route: 048
  2. FUROSEMIDE. [Suspect]
     Active Substance: FUROSEMIDE
     Dosage: 40 MG, 0.5-0.5-0-0, TABLETTEN
     Route: 048
  3. PANTOPRAZOL [Concomitant]
     Active Substance: PANTOPRAZOLE SODIUM
     Dosage: 40 MG, 1-0-0-0, TABLETTEN
     Route: 048
  4. SIMVASTATIN. [Concomitant]
     Active Substance: SIMVASTATIN
     Dosage: 20 MG, 0-0-1-0, TABLETTEN
     Route: 048
  5. FOLSAN 5MG [Concomitant]
     Dosage: 5 MG, 1-0-0-0, TABLETTEN
     Route: 048
  6. CARVEDILOL. [Concomitant]
     Active Substance: CARVEDILOL
     Dosage: 6.25 MG, 0.5-0-0-0, TABLETTEN
     Route: 048
  7. NEUROBION N DRAGEES [Concomitant]
     Dosage: 53.46|82.27 MG, 1-1-1-0, TABLETTEN
     Route: 048
  8. XIPAMIDE [Suspect]
     Active Substance: XIPAMIDE
     Dosage: 10 MG, 1-0-0-0, TABLETTEN
     Route: 048
  9. ASS 100 [Concomitant]
     Active Substance: ASPIRIN
     Dosage: 100 MG, 1-0-0-0, TABLETTEN
     Route: 048
  10. NATRIUMCHLORID [Concomitant]
     Active Substance: SODIUM CHLORIDE
     Dosage: 250 MG, 2-2-2-0, TABLETTEN
     Route: 048
  11. KALIUM VERLA [Concomitant]
     Active Substance: POTASSIUM CITRATE
     Dosage: 780 MG, 1-0-1-0, GRANULAT
     Route: 048
  12. MELPERON-CT 25MG [Concomitant]
     Dosage: 25 MG, 0-0-0-1, SAFT
     Route: 048
  13. LACTULOSE. [Concomitant]
     Active Substance: LACTULOSE
     Dosage: 10 ML, 1-1-1-0, SIRUP
     Route: 048
  14. XIFAXAN [Concomitant]
     Active Substance: RIFAXIMIN
     Dosage: 550 MG, 1-0-1-0, TABLETTEN
     Route: 048
  15. LEVOTHYROXIN [Concomitant]
     Active Substance: LEVOTHYROXINE
     Dosage: 75 ?G, 1-0-0-0, TABLETTEN
     Route: 048

REACTIONS (4)
  - Abdominal pain lower [Unknown]
  - Dizziness [Unknown]
  - Dyspnoea [Unknown]
  - Nausea [Unknown]
